FAERS Safety Report 9075935 (Version 1)
Quarter: 2013Q1

REPORT INFORMATION
  Report Type: Report from Study
  Country: US (occurrence: US)
  Receive Date: 20130129
  Receipt Date: 20130129
  Transmission Date: 20140127
  Serious: No
  Sender: FDA-Public Use
  Company Number: US-ABBOTT-12P-163-0944355-00

PATIENT
  Sex: 0

DRUGS (3)
  1. HUMIRA 40 MG/0.8 ML PEN [Suspect]
     Indication: PSORIASIS
     Dosage: 2 PENS ONE DAY 1
     Route: 058
     Dates: start: 201205, end: 201205
  2. HUMIRA 40 MG/0.8 ML PEN [Suspect]
     Dosage: ONE PEN ON DAY 8
     Route: 058
  3. HUMIRA 40 MG/0.8 ML PEN [Suspect]

REACTIONS (3)
  - Arthralgia [Unknown]
  - Rash [Unknown]
  - Dyspnoea [Unknown]
